FAERS Safety Report 18865771 (Version 7)
Quarter: 2022Q2

REPORT INFORMATION
  Report Type: Spontaneous
  Country: US (occurrence: US)
  Receive Date: 20210208
  Receipt Date: 20220401
  Transmission Date: 20220721
  Serious: Yes (Other)
  Sender: FDA-Public Use
  Company Number: US-PFIZER INC-2021063127

PATIENT
  Age: 86 Year
  Sex: Female

DRUGS (2)
  1. XELJANZ XR [Suspect]
     Active Substance: TOFACITINIB CITRATE
     Indication: Rheumatoid arthritis
     Dosage: 11 MG, DAILY
     Route: 048
     Dates: start: 20200922
  2. HYDROXYCHLOROQUINE [Concomitant]
     Active Substance: HYDROXYCHLOROQUINE
     Dosage: UNK

REACTIONS (21)
  - Blindness [Recovering/Resolving]
  - Retinal artery occlusion [Recovered/Resolved]
  - Retinal artery occlusion [Recovered/Resolved]
  - Hypoacusis [Unknown]
  - Paraesthesia [Unknown]
  - Hypoaesthesia [Not Recovered/Not Resolved]
  - Musculoskeletal stiffness [Unknown]
  - Condition aggravated [Unknown]
  - Hypotension [Unknown]
  - Blood cholesterol increased [Unknown]
  - Fatigue [Unknown]
  - Malaise [Unknown]
  - Haemorrhoids [Unknown]
  - Arthralgia [Unknown]
  - Arthropathy [Unknown]
  - Alopecia [Unknown]
  - Gastric disorder [Unknown]
  - Weight increased [Unknown]
  - Therapeutic product effect incomplete [Unknown]
  - Insomnia [Unknown]
  - Renal disorder [Unknown]

NARRATIVE: CASE EVENT DATE: 20210101
